FAERS Safety Report 7889276-6 (Version None)
Quarter: 2011Q4

REPORT INFORMATION
  Report Type: 
  Country: None (occurrence: None)
  Receive Date: 20111101
  Receipt Date: 20111024
  Transmission Date: 20120403
  Serious: Yes (Other)
  Sender: FDA-Public Use
  Company Number: AUR-APL-2011-05537

PATIENT
  Age: 78 Year
  Sex: Female
  Weight: 85.2762 kg

DRUGS (4)
  1. SYNTHROID [Concomitant]
  2. SIMVASTATIN [Concomitant]
  3. NORVASC [Concomitant]
  4. ZOLPIDEM [Suspect]
     Indication: INSOMNIA
     Dosage: 5 MG, 1 D, ORAL
     Route: 048
     Dates: start: 20111008

REACTIONS (1)
  - MIDDLE INSOMNIA [None]
